FAERS Safety Report 5646160-6 (Version None)
Quarter: 2008Q1

REPORT INFORMATION
  Report Type: 
  Country: None (occurrence: None)
  Receive Date: 20080229
  Receipt Date: 20080218
  Transmission Date: 20080703
  Serious: Yes (Other)
  Sender: FDA-Public Use
  Company Number: US-PFIZER INC-2008017342

PATIENT
  Sex: Male
  Weight: 77.272 kg

DRUGS (3)
  1. CHANTIX [Suspect]
     Indication: SMOKING CESSATION THERAPY
     Dates: start: 20080211, end: 20080213
  2. DIAZEPAM [Concomitant]
  3. NEXIUM [Concomitant]

REACTIONS (2)
  - DIZZINESS [None]
  - INNER EAR DISORDER [None]
